FAERS Safety Report 9213003 (Version 1)
Quarter: 2013Q2

REPORT INFORMATION
  Report Type: Spontaneous
  Country: US (occurrence: None)
  Receive Date: 20130403
  Receipt Date: 20130403
  Transmission Date: 20140414
  Serious: Yes (Hospitalization, Other)
  Sender: FDA-Public Use
  Company Number: None

PATIENT
  Age: 72 Year
  Sex: Male
  Weight: 86 kg

DRUGS (2)
  1. AZITHROMYCIN 250MG [Suspect]
  2. AZITHROMYCIN-ZPAK [Concomitant]

REACTIONS (1)
  - Acute myocardial infarction [None]
